FAERS Safety Report 11103254 (Version 2)
Quarter: 2015Q2

REPORT INFORMATION
  Report Type: Report from Study
  Country: BR (occurrence: BR)
  Receive Date: 20150511
  Receipt Date: 20150602
  Transmission Date: 20150821
  Serious: Yes (Other)
  Sender: FDA-Public Use
  Company Number: BR-SA-2015SA061550

PATIENT
  Age: 36 Year
  Sex: Female
  Weight: 65 kg

DRUGS (8)
  1. LANTUS [Suspect]
     Active Substance: INSULIN GLARGINE
     Indication: TYPE 1 DIABETES MELLITUS
     Route: 058
     Dates: start: 2005, end: 201503
  2. APIDRA [Suspect]
     Active Substance: INSULIN GLULISINE
     Indication: TYPE 1 DIABETES MELLITUS
     Dosage: 10-20 UNITS DAILY?FORM 3 ML CARTRDIDGE
     Route: 058
  3. CLIKSTAR [Concomitant]
     Active Substance: CLIKSTAR
     Indication: DEVICE THERAPY
  4. APIDRA [Suspect]
     Active Substance: INSULIN GLULISINE
     Indication: TYPE 1 DIABETES MELLITUS
     Dosage: 10-20 UNITS DAILY?FORM 3 ML CARTRDIDGE
     Route: 058
     Dates: start: 2009
  5. CLIKSTAR [Concomitant]
     Active Substance: CLIKSTAR
     Indication: DEVICE THERAPY
     Dates: start: 2005, end: 201503
  6. PURAN [Concomitant]
     Active Substance: LEVOTHYROXINE SODIUM
     Indication: HYPOTHYROIDISM
     Route: 048
     Dates: start: 2005
  7. INSULIN, REGULAR [Concomitant]
     Active Substance: INSULIN NOS
  8. CLIKSTAR [Concomitant]
     Active Substance: CLIKSTAR
     Indication: DEVICE THERAPY
     Dates: start: 2009

REACTIONS (4)
  - Visual impairment [Recovering/Resolving]
  - Inappropriate schedule of drug administration [Unknown]
  - Retinopathy [Recovering/Resolving]
  - Eye pain [Recovering/Resolving]
